FAERS Safety Report 17906339 (Version 1)
Quarter: 2020Q2

REPORT INFORMATION
  Report Type: Spontaneous
  Country: US (occurrence: US)
  Receive Date: 20200616
  Receipt Date: 20200616
  Transmission Date: 20200714
  Serious: No
  Sender: FDA-Public Use
  Company Number: US-ROCHE-2370425

PATIENT
  Age: 74 Year
  Sex: Male
  Weight: 90.8 kg

DRUGS (1)
  1. ACTEMRA [Suspect]
     Active Substance: TOCILIZUMAB
     Indication: TEMPORAL ARTERITIS
     Dosage: YES
     Route: 058
     Dates: start: 2019

REACTIONS (3)
  - Hypoaesthesia [Not Recovered/Not Resolved]
  - Hyporeflexia [Not Recovered/Not Resolved]
  - Paraesthesia [Not Recovered/Not Resolved]

NARRATIVE: CASE EVENT DATE: 201907
